FAERS Safety Report 16036421 (Version 1)
Quarter: 2019Q1

REPORT INFORMATION
  Report Type: Spontaneous
  Country: US (occurrence: US)
  Receive Date: 20190305
  Receipt Date: 20190305
  Transmission Date: 20190418
  Serious: No
  Sender: FDA-Public Use
  Company Number: US-ALLERGAN-1849884US

PATIENT
  Sex: Female

DRUGS (3)
  1. ESTRACE [Suspect]
     Active Substance: ESTRADIOL
     Indication: PAIN
  2. ESTRACE [Suspect]
     Active Substance: ESTRADIOL
     Indication: VULVOVAGINAL DRYNESS
     Dosage: 0.5 GRAMS, 2 TIMES PER WEEK
     Route: 067
     Dates: start: 2016
  3. XANAX [Concomitant]
     Active Substance: ALPRAZOLAM
     Indication: ANXIETY
     Dosage: UNK UNK, PRN
     Route: 048

REACTIONS (9)
  - Hot flush [Recovered/Resolved]
  - Off label use [Unknown]
  - Drug ineffective [Unknown]
  - Vulvovaginal pruritus [Recovered/Resolved]
  - Incorrect dose administered [Unknown]
  - Atrophic vulvovaginitis [Recovered/Resolved]
  - Fungal infection [Recovered/Resolved]
  - Vulvovaginal discomfort [Recovered/Resolved]
  - Vulvovaginal erythema [Recovered/Resolved]
